FAERS Safety Report 5700966-3 (Version None)
Quarter: 2008Q2

REPORT INFORMATION
  Report Type: 
  Country: None (occurrence: None)
  Receive Date: 20080407
  Receipt Date: 20080325
  Transmission Date: 20081010
  Serious: Yes (Life-Threatening, Hospitalization)
  Sender: FDA-Public Use
  Company Number: 107#08#2008-01773

PATIENT
  Age: 63 Year
  Sex: Male

DRUGS (4)
  1. FLECAINIDE ACETATE [Suspect]
     Indication: PROPHYLAXIS
     Dosage: UNKNOWN DOSAGE FOR INTRAVENOUS ADMINISTRATION, CHANGED TO ORALLY WITH 100 MG TWICE DAILY
  2. FLECAINIDE ACETATE [Suspect]
     Indication: TACHYCARDIA
     Dosage: UNKNOWN DOSAGE FOR INTRAVENOUS ADMINISTRATION, CHANGED TO ORALLY WITH 100 MG TWICE DAILY
  3. BENDROFLUMETHIAZIDE (BENDROFLUMETHIAZIDE) [Suspect]
     Indication: HYPERTENSION
     Dosage: 2.5 MG
  4. FELODIPINE [Concomitant]

REACTIONS (12)
  - ARRHYTHMIA [None]
  - CARDIOTOXICITY [None]
  - DRUG INTERACTION [None]
  - ELECTROCARDIOGRAM QRS COMPLEX PROLONGED [None]
  - ELECTROLYTE IMBALANCE [None]
  - FATIGUE [None]
  - HYPOKALAEMIA [None]
  - HYPONATRAEMIA [None]
  - LOSS OF CONSCIOUSNESS [None]
  - MUSCULAR WEAKNESS [None]
  - SYNCOPE [None]
  - TACHYCARDIA [None]
